FAERS Safety Report 4881128-9 (Version None)
Quarter: 2005Q4

REPORT INFORMATION
  Report Type: 
  Country: None (occurrence: None)
  Receive Date: 20051223
  Receipt Date: 20050913
  Transmission Date: 20060501
  Serious: No
  Sender: FDA-Public Use
  Company Number: 05P-163-0310933-00

PATIENT
  Age: 62 Year
  Sex: Female

DRUGS (15)
  1. HUMIRA [Suspect]
     Indication: RHEUMATOID ARTHRITIS
     Dosage: 40 MG, 1 IN 2 WK, SUBCUTANEOUS
     Route: 058
     Dates: start: 20050822
  2. OESTRANORM [Concomitant]
  3. FLUOXETINE HYDROCHLORIDE [Concomitant]
  4. ARMOUR [Concomitant]
  5. VICODIN [Concomitant]
  6. ZOLPIDEM TARTRATE [Concomitant]
  7. ATENOLOL [Concomitant]
  8. BLOPRESS PLUS [Concomitant]
  9. FOLIC ACID [Concomitant]
  10. METHOTREXATE SODIUM [Concomitant]
  11. PREDNISONE [Concomitant]
  12. FOLINIC ACID [Concomitant]
  13. TRAZODONE HCL [Concomitant]
  14. PIROXICAM [Concomitant]
  15. LANSOPRAZOLE [Concomitant]

REACTIONS (1)
  - FATIGUE [None]
